FAERS Safety Report 6724835-5 (Version None)
Quarter: 2010Q2

REPORT INFORMATION
  Report Type: 
  Country: None (occurrence: None)
  Receive Date: 20100513
  Receipt Date: 20100513
  Transmission Date: 20101027
  Serious: Yes (Life-Threatening)
  Sender: FDA-Public Use
  Company Number: None

PATIENT
  Age: 48 Year
  Sex: Female
  Weight: 63.5036 kg

DRUGS (1)
  1. LUPRON [Suspect]
     Indication: IN VITRO FERTILISATION
     Dosage: LUPRON MICRODOSE 10 UNITS TWICE A DAY
     Dates: start: 20090414, end: 20090424

REACTIONS (41)
  - AMENORRHOEA [None]
  - ARTHRALGIA [None]
  - BACK PAIN [None]
  - BLOOD CALCIUM DECREASED [None]
  - BLOOD PRESSURE FLUCTUATION [None]
  - BONE PAIN [None]
  - BREAST ENLARGEMENT [None]
  - BREAST PAIN [None]
  - CHILLS [None]
  - DRY EYE [None]
  - DRY THROAT [None]
  - DYSPNOEA [None]
  - EPISTAXIS [None]
  - FACIAL PAIN [None]
  - FIBROMYALGIA [None]
  - GINGIVAL BLEEDING [None]
  - HEADACHE [None]
  - JOINT SWELLING [None]
  - LIBIDO DECREASED [None]
  - MEMORY IMPAIRMENT [None]
  - MUSCLE ATROPHY [None]
  - MUSCLE SPASMS [None]
  - MUSCULAR WEAKNESS [None]
  - MYALGIA [None]
  - NAIL DISORDER [None]
  - NAIL GROWTH ABNORMAL [None]
  - NECK PAIN [None]
  - NEUROPATHY PERIPHERAL [None]
  - OEDEMA PERIPHERAL [None]
  - ONYCHOCLASIS [None]
  - OROPHARYNGEAL PAIN [None]
  - PAIN IN EXTREMITY [None]
  - PARAESTHESIA [None]
  - SEROTONIN SYNDROME [None]
  - SLEEP DISORDER [None]
  - TINNITUS [None]
  - UNEVALUABLE EVENT [None]
  - UTERINE POLYP [None]
  - VISUAL IMPAIRMENT [None]
  - VITAMIN D DECREASED [None]
  - VULVOVAGINAL DRYNESS [None]
